FAERS Safety Report 9178844 (Version 1)
Quarter: 2012Q4

REPORT INFORMATION
  Report Type: Report from Study
  Country: AU (occurrence: AU)
  Receive Date: 20121029
  Receipt Date: 20121029
  Transmission Date: 20130627
  Serious: Yes (Other)
  Sender: FDA-Public Use
  Company Number: AU-JNJFOC-20121015649

PATIENT
  Age: 40 None
  Sex: Female

DRUGS (6)
  1. REMICADE [Suspect]
     Indication: CROHN^S DISEASE
     Route: 042
     Dates: start: 20121018
  2. PREDNISOLONE [Concomitant]
  3. 6-MERCAPTOPURINE [Concomitant]
  4. PANADEINE FORTE [Concomitant]
  5. MESALAMINE [Concomitant]
  6. OXYNORM [Concomitant]

REACTIONS (8)
  - Asthenia [Recovering/Resolving]
  - Infusion related reaction [Recovered/Resolved]
  - Abdominal pain lower [Recovering/Resolving]
  - Nausea [Recovering/Resolving]
  - Diarrhoea [Recovering/Resolving]
  - Dysstasia [Recovering/Resolving]
  - Dizziness [Recovering/Resolving]
  - Fatigue [Recovering/Resolving]
